FAERS Safety Report 23775080 (Version 1)
Quarter: 2024Q2

REPORT INFORMATION
  Report Type: Spontaneous
  Country: DE (occurrence: DE)
  Receive Date: 20240423
  Receipt Date: 20240423
  Transmission Date: 20240716
  Serious: Yes (Other)
  Sender: FDA-Public Use
  Company Number: DE-BRISTOL-MYERS SQUIBB COMPANY-2024-061471

PATIENT
  Age: 44 Year
  Sex: Female

DRUGS (7)
  1. ELIQUIS [Suspect]
     Active Substance: APIXABAN
     Indication: Deep vein thrombosis
     Dates: start: 202304
  2. ELIQUIS [Suspect]
     Active Substance: APIXABAN
     Indication: Pulmonary embolism
     Dates: start: 202304
  3. ELIQUIS [Suspect]
     Active Substance: APIXABAN
     Dates: start: 202304
  4. ELIQUIS [Suspect]
     Active Substance: APIXABAN
     Dates: start: 202304
  5. ELIQUIS [Suspect]
     Active Substance: APIXABAN
     Dates: start: 202304
  6. AMISULPRIDE [Concomitant]
     Active Substance: AMISULPRIDE
     Indication: Product used for unknown indication
  7. QUETIAPINE [Concomitant]
     Active Substance: QUETIAPINE
     Indication: Product used for unknown indication

REACTIONS (7)
  - Dizziness [Unknown]
  - Syncope [Unknown]
  - Internal haemorrhage [Unknown]
  - Swelling [Unknown]
  - Abdominal discomfort [Unknown]
  - Off label use [Unknown]
  - Treatment noncompliance [Unknown]

NARRATIVE: CASE EVENT DATE: 20230401
